FAERS Safety Report 5989452-3 (Version None)
Quarter: 2008Q4

REPORT INFORMATION
  Report Type: 
  Country: None (occurrence: None)
  Receive Date: 20081205
  Receipt Date: 20081124
  Transmission Date: 20090506
  Serious: Yes (Hospitalization)
  Sender: FDA-Public Use
  Company Number: 2008021306

PATIENT
  Age: 53 Year
  Sex: Female
  Weight: 90.7194 kg

DRUGS (2)
  1. ROGAINE [Suspect]
     Indication: ALOPECIA
     Dosage: RECOMMENDED DOSE 1X DAY FOR 1 DAY, TOPICAL
     Route: 061
     Dates: start: 20080811, end: 20080812
  2. MOMETASONE FUROATE [Concomitant]

REACTIONS (2)
  - APPLICATION SITE SCAB [None]
  - SECRETION DISCHARGE [None]
